FAERS Safety Report 7584332-4 (Version None)
Quarter: 2011Q2

REPORT INFORMATION
  Report Type: 
  Country: None (occurrence: None)
  Receive Date: 20110630
  Receipt Date: 20110621
  Transmission Date: 20111010
  Serious: Yes (Death, Life-Threatening, Hospitalization)
  Sender: FDA-Public Use
  Company Number: KR-BAYER-2011-042636

PATIENT
  Age: 69 Year
  Sex: Female
  Weight: 55 kg

DRUGS (13)
  1. SORAFENIB (RAF KINASE INHIBITOR) [Suspect]
     Indication: HEPATIC NEOPLASM MALIGNANT
     Dosage: 400 MG, QD(PM)
     Route: 048
     Dates: start: 20110612, end: 20110612
  2. SORAFENIB (RAF KINASE INHIBITOR) [Suspect]
     Dosage: 200 MG, QD(AM)
     Route: 048
     Dates: start: 20110615, end: 20110615
  3. MORPHINE [Concomitant]
     Indication: ABDOMINAL PAIN
     Dosage: DAILY DOSE 3 MG
     Route: 058
     Dates: start: 20110518, end: 20110518
  4. FUTHAN [Concomitant]
     Indication: BLOOD AMYLASE INCREASED
     Dosage: DAILY DOSE 50 MG
     Route: 042
     Dates: start: 20110518
  5. MEK INHIBITOR (DIHYDROXYPROP-DIFLU-METHOXYPHEN-CYCLOPROPA-SULFAMI) [Suspect]
     Indication: HEPATIC NEOPLASM MALIGNANT
     Dosage: 50 MG, QD(PM)
     Route: 048
     Dates: start: 20110612, end: 20110612
  6. MEGACE [Concomitant]
     Indication: DECREASED APPETITE
     Dosage: DAILY DOSE 20 ML
     Route: 048
     Dates: start: 20110519
  7. NORVASC [Concomitant]
     Indication: HYPERTENSION
     Dosage: DAILY DOSE 5 MG
     Route: 048
     Dates: start: 20110519
  8. MEK INHIBITOR (DIHYDROXYPROP-DIFLU-METHOXYPHEN-CYCLOPROPA-SULFAMI) [Suspect]
     Dosage: 50 MG, BID (50 AM/50 PM)
     Route: 048
     Dates: start: 20110613, end: 20110614
  9. MEPERIDINE HCL [Concomitant]
     Indication: ABDOMINAL PAIN
     Dosage: DAILY DOSE 25 MG
     Route: 042
     Dates: start: 20110518, end: 20110518
  10. MEK INHIBITOR (DIHYDROXYPROP-DIFLU-METHOXYPHEN-CYCLOPROPA-SULFAMI) [Suspect]
     Dosage: 50 MG, QD(AM)
     Route: 048
     Dates: start: 20110615, end: 20110615
  11. SORAFENIB (RAF KINASE INHIBITOR) [Suspect]
     Dosage: 600 MG, QD(200 AM/ 400 PM)
     Dates: start: 20110613, end: 20110614
  12. DEXTROSE [Concomitant]
     Indication: PROPHYLAXIS AGAINST DEHYDRATION
     Dosage: DAILY DOSE 500 ML
     Route: 042
     Dates: start: 20110518
  13. HEPATAMINE [Concomitant]
     Indication: MEDICAL DIET
     Dosage: DAILY DOSE 500 MG
     Route: 042
     Dates: start: 20110518

REACTIONS (2)
  - TUMOUR LYSIS SYNDROME [None]
  - BLOOD BILIRUBIN INCREASED [None]
